FAERS Safety Report 14807441 (Version 1)
Quarter: 2018Q2

REPORT INFORMATION
  Report Type: Report from Study
  Country: IT (occurrence: IT)
  Receive Date: 20180425
  Receipt Date: 20180425
  Transmission Date: 20180711
  Serious: Yes (Hospitalization)
  Sender: FDA-Public Use
  Company Number: IT-UCBSA-2018009517

PATIENT
  Sex: Male

DRUGS (21)
  1. ROTIGOTINE [Suspect]
     Active Substance: ROTIGOTINE
     Dosage: 6 MG, ONCE DAILY (QD)
  2. MADOPAR [Concomitant]
     Active Substance: BENSERAZIDE HYDROCHLORIDE\LEVODOPA
     Indication: PRODUCT USED FOR UNKNOWN INDICATION
  3. AZILECT [Concomitant]
     Active Substance: RASAGILINE MESYLATE
     Indication: PRODUCT USED FOR UNKNOWN INDICATION
  4. ROTIGOTINE [Suspect]
     Active Substance: ROTIGOTINE
     Dosage: 4 MG, ONCE DAILY (QD)
  5. PERIDON [Concomitant]
     Active Substance: DOMPERIDONE
     Indication: PRODUCT USED FOR UNKNOWN INDICATION
  6. OXYBUTYNIN. [Concomitant]
     Active Substance: OXYBUTYNIN CHLORIDE
     Indication: PRODUCT USED FOR UNKNOWN INDICATION
  7. RIVOTRIL [Concomitant]
     Active Substance: CLONAZEPAM
     Dosage: 5 DROPS, DAILY DOSE
  8. QUETIAPINE. [Concomitant]
     Active Substance: QUETIAPINE
     Indication: PRODUCT USED FOR UNKNOWN INDICATION
  9. SIRIO [Concomitant]
     Active Substance: CARBIDOPA\MELEVODOPA
     Indication: PRODUCT USED FOR UNKNOWN INDICATION
  10. ROTIGOTINE [Suspect]
     Active Substance: ROTIGOTINE
     Indication: PARKINSON^S DISEASE
     Dosage: INITIAL DOSAGE WAS THE LOWEST
     Dates: start: 2012
  11. ROTIGOTINE [Suspect]
     Active Substance: ROTIGOTINE
     Dosage: 6 MG, DAILY DOSE
  12. BIPERIDEN [Concomitant]
     Active Substance: BIPERIDEN
     Indication: PRODUCT USED FOR UNKNOWN INDICATION
  13. LEVODOPA [Concomitant]
     Active Substance: LEVODOPA
     Indication: PRODUCT USED FOR UNKNOWN INDICATION
  14. STALEVO [Concomitant]
     Active Substance: CARBIDOPA\ENTACAPONE\LEVODOPA
     Indication: PRODUCT USED FOR UNKNOWN INDICATION
  15. SORMODREN [Concomitant]
     Active Substance: BORNAPRINE HYDROCHLORIDE
     Indication: PRODUCT USED FOR UNKNOWN INDICATION
  16. TAVOR (LORAZEPAM) [Concomitant]
     Active Substance: LORAZEPAM
     Indication: PRODUCT USED FOR UNKNOWN INDICATION
  17. PRAZENE [Concomitant]
     Active Substance: PRAZEPAM
     Indication: PRODUCT USED FOR UNKNOWN INDICATION
  18. NOPAR [Concomitant]
     Active Substance: PERGOLIDE MESYLATE
     Indication: PRODUCT USED FOR UNKNOWN INDICATION
  19. SERTRALINE [Concomitant]
     Active Substance: SERTRALINE HYDROCHLORIDE
     Indication: PRODUCT USED FOR UNKNOWN INDICATION
  20. SEROQUEL [Concomitant]
     Active Substance: QUETIAPINE FUMARATE
     Indication: PRODUCT USED FOR UNKNOWN INDICATION
  21. LORAZEPAM. [Concomitant]
     Active Substance: LORAZEPAM
     Indication: PRODUCT USED FOR UNKNOWN INDICATION

REACTIONS (10)
  - Skin hyperpigmentation [Not Recovered/Not Resolved]
  - Pruritus [Not Recovered/Not Resolved]
  - Erythema [Not Recovered/Not Resolved]
  - Intentional product misuse [Unknown]
  - Vertigo [Unknown]
  - Hypotension [Unknown]
  - Product adhesion issue [Unknown]
  - Rash [Unknown]
  - Application site pain [Not Recovered/Not Resolved]
  - Parkinson^s disease [Unknown]
